FAERS Safety Report 5150473-4 (Version None)
Quarter: 2006Q4

REPORT INFORMATION
  Report Type: 
  Country: None (occurrence: None)
  Receive Date: 20061114
  Receipt Date: 20061108
  Transmission Date: 20070319
  Serious: Yes (Disabling)
  Sender: FDA-Public Use
  Company Number: 2006CG01820

PATIENT
  Age: 1 Day
  Sex: Male
  Weight: 3.9 kg

DRUGS (2)
  1. ZOMIG [Suspect]
     Route: 064
     Dates: end: 20040815
  2. AERIUS [Suspect]
     Route: 064
     Dates: end: 20040916

REACTIONS (2)
  - DRUG EXPOSURE DURING PREGNANCY [None]
  - PULMONARY MALFORMATION [None]
